FAERS Safety Report 16121141 (Version 2)
Quarter: 2019Q2

REPORT INFORMATION
  Report Type: Spontaneous
  Country: FR (occurrence: FR)
  Receive Date: 20190327
  Receipt Date: 20190416
  Transmission Date: 20190711
  Serious: Yes (Other)
  Sender: FDA-Public Use
  Company Number: FR-AUROBINDO-AUR-APL-2019-016846

PATIENT

DRUGS (5)
  1. GABAPENTIN ARROW [Suspect]
     Active Substance: GABAPENTIN
     Indication: EPILEPSY
     Dosage: 900 MILLIGRAM, ONCE A DAY
     Route: 048
     Dates: start: 20190103, end: 20190304
  2. ECONAZOLE ARROW LP 150MG, PROLONGED-RELEASE VAGINAL CAPSULE [Suspect]
     Active Substance: ECONAZOLE
     Indication: PRODUCT USED FOR UNKNOWN INDICATION
     Dosage: UNK
     Route: 061
     Dates: start: 20181214
  3. LANSOPRAZOLE MYLAN [Suspect]
     Active Substance: LANSOPRAZOLE
     Indication: PROPHYLAXIS AGAINST GASTROINTESTINAL ULCER
     Dosage: 30 MILLIGRAM, ONCE A DAY
     Route: 048
     Dates: start: 20181214
  4. VIMPAT [Suspect]
     Active Substance: LACOSAMIDE
     Indication: EPILEPSY
     Dosage: 200 MILLIGRAM, ONCE A DAY
     Route: 048
     Dates: start: 201811
  5. LOVENOX [Suspect]
     Active Substance: ENOXAPARIN SODIUM
     Indication: THROMBOSIS PROPHYLAXIS
     Dosage: 0.4 MILLILITER, ONCE A DAY
     Route: 058
     Dates: start: 20181224

REACTIONS (1)
  - Eosinophilia [Not Recovered/Not Resolved]

NARRATIVE: CASE EVENT DATE: 20190107
